FAERS Safety Report 24851076 (Version 2)
Quarter: 2025Q1

REPORT INFORMATION
  Report Type: Spontaneous
  Country: US (occurrence: IL)
  Receive Date: 20250116
  Receipt Date: 20250123
  Transmission Date: 20250409
  Serious: Yes (Other)
  Sender: ANI
  Company Number: US-ANIPHARMA-2025-IL-000004

PATIENT
  Age: 56 Year
  Sex: Male

DRUGS (5)
  1. CANDESARTAN CILEXETIL AND HYDROCHLOROTHIAZIDE [Suspect]
     Active Substance: CANDESARTAN CILEXETIL\HYDROCHLOROTHIAZIDE
     Indication: Product used for unknown indication
     Dates: start: 20220717
  2. NEXIUM [Concomitant]
     Active Substance: ESOMEPRAZOLE MAGNESIUM
  3. NORVASC [Concomitant]
     Active Substance: AMLODIPINE BESYLATE
  4. PRAVASTATIN [Concomitant]
     Active Substance: PRAVASTATIN
  5. WEGOVY [Concomitant]
     Active Substance: SEMAGLUTIDE

REACTIONS (4)
  - Abdominal pain [Unknown]
  - Dizziness [Unknown]
  - Dysuria [Unknown]
  - Asthenia [Unknown]
